FAERS Safety Report 8087509-7 (Version None)
Quarter: 2012Q1

REPORT INFORMATION
  Report Type: 
  Country: None (occurrence: None)
  Receive Date: 20120128
  Receipt Date: 20110503
  Transmission Date: 20120608
  Serious: No
  Sender: FDA-Public Use
  Company Number: US-ABBOTT-11P-163-0722994-00

PATIENT
  Sex: Male
  Weight: 103.97 kg

DRUGS (7)
  1. HUMIRA [Suspect]
     Indication: PSORIASIS
  2. PLAQUENIL [Concomitant]
     Indication: RHEUMATOID ARTHRITIS
  3. HUMIRA [Suspect]
     Indication: RHEUMATOID ARTHRITIS
     Dates: start: 20090101
  4. ZETIA [Concomitant]
     Indication: BLOOD CHOLESTEROL INCREASED
  5. RELAFEN [Concomitant]
     Indication: RHEUMATOID ARTHRITIS
  6. WELCHOL [Concomitant]
     Indication: BLOOD CHOLESTEROL INCREASED
  7. ULTRAM [Concomitant]
     Indication: PAIN

REACTIONS (2)
  - INJECTION SITE PAIN [None]
  - PHOTOSENSITIVITY REACTION [None]
